APPROVED DRUG PRODUCT: FENTANYL-50
Active Ingredient: FENTANYL
Strength: 50MCG/HR
Dosage Form/Route: FILM, EXTENDED RELEASE;TRANSDERMAL
Application: A077062 | Product #002
Applicant: MAYNE PHARMA LLC
Approved: Aug 20, 2007 | RLD: No | RS: No | Type: DISCN